FAERS Safety Report 10203942 (Version 1)
Quarter: 2014Q2

REPORT INFORMATION
  Report Type: Spontaneous
  Country: US (occurrence: None)
  Receive Date: 20140523
  Receipt Date: 20140523
  Transmission Date: 20141212
  Serious: Yes (Other)
  Sender: FDA-Public Use
  Company Number: BR14-185-AE

PATIENT
  Age: 51 Year
  Sex: Female
  Weight: 79.83 kg

DRUGS (1)
  1. BUPRENORPHINE/NALOXONE SUBLINGUAL FILM 8 MG/2 MG [Suspect]
     Indication: DEPENDENCE
     Dosage: 1/4 TABLET, ORAL
     Route: 048

REACTIONS (14)
  - Ill-defined disorder [None]
  - Bedridden [None]
  - Hyperhidrosis [None]
  - Gait disturbance [None]
  - Hypophagia [None]
  - Oliguria [None]
  - Weight increased [None]
  - Nausea [None]
  - Alopecia [None]
  - Visual impairment [None]
  - Amnesia [None]
  - Swelling [None]
  - Drug withdrawal syndrome [None]
  - Local swelling [None]
